FAERS Safety Report 9234521 (Version 1)
Quarter: 2013Q2

REPORT INFORMATION
  Report Type: Spontaneous
  Country: US (occurrence: US)
  Receive Date: 20130416
  Receipt Date: 20130416
  Transmission Date: 20140414
  Serious: No
  Sender: FDA-Public Use
  Company Number: US-009507513-1304USA006362

PATIENT
  Sex: Male

DRUGS (6)
  1. PEG-INTRON [Suspect]
     Dosage: 120 MCG/0.5 ML
     Route: 058
  2. RIBAVIRIN [Suspect]
  3. TELAPREVIR [Suspect]
  4. METAMUCIL [Concomitant]
  5. GINSENG (UNSPECIFIED) [Concomitant]
  6. ADVIL [Concomitant]

REACTIONS (1)
  - Cough [Unknown]
